FAERS Safety Report 6302831-X (Version None)
Quarter: 2009Q3

REPORT INFORMATION
  Report Type: 
  Country: None (occurrence: None)
  Receive Date: 20090810
  Receipt Date: 20090805
  Transmission Date: 20100115
  Serious: Yes (Death, Other)
  Sender: FDA-Public Use
  Company Number: JP-ELI_LILLY_AND_COMPANY-JP200908001091

PATIENT
  Age: 66 Year
  Sex: Male

DRUGS (4)
  1. GEMZAR [Suspect]
     Indication: TRANSITIONAL CELL CARCINOMA
     Dosage: UNK, UNK
     Route: 042
     Dates: start: 20080403, end: 20080101
  2. GEMZAR [Suspect]
     Dosage: UNK, UNK
     Route: 042
     Dates: start: 20081101
  3. PACLITAXEL [Concomitant]
     Indication: TRANSITIONAL CELL CARCINOMA
     Dosage: UNK, UNK
     Route: 042
     Dates: start: 20080403, end: 20080101
  4. PACLITAXEL [Concomitant]
     Dosage: UNK, UNK
     Route: 042
     Dates: start: 20081101

REACTIONS (5)
  - METASTASES TO LYMPH NODES [None]
  - METASTASES TO SKIN [None]
  - MULTI-ORGAN FAILURE [None]
  - NEUTROPHIL COUNT DECREASED [None]
  - VOMITING [None]
